FAERS Safety Report 19259816 (Version 1)
Quarter: 2021Q2

REPORT INFORMATION
  Report Type: Report from Study
  Country: NL (occurrence: NL)
  Receive Date: 20210514
  Receipt Date: 20210514
  Transmission Date: 20210717
  Serious: Yes (Death, Other)
  Sender: FDA-Public Use
  Company Number: NL-TAKEDA-2021TUS030796

PATIENT

DRUGS (3)
  1. BORTEZOMIB. [Suspect]
     Active Substance: BORTEZOMIB
     Indication: MYELODYSPLASTIC SYNDROME
  2. BORTEZOMIB. [Suspect]
     Active Substance: BORTEZOMIB
     Indication: ACUTE MYELOID LEUKAEMIA
     Dosage: UNK
     Route: 042
  3. TIPIFARNIB [Suspect]
     Active Substance: TIPIFARNIB
     Indication: MYELODYSPLASTIC SYNDROME
     Dosage: 200 MILLIGRAM, BID
     Route: 048

REACTIONS (18)
  - Febrile neutropenia [Unknown]
  - Gastrointestinal disorder [Unknown]
  - Fatigue [Unknown]
  - Hypersensitivity [Unknown]
  - Cardiac disorder [Unknown]
  - Nervous system disorder [Unknown]
  - Infection [Fatal]
  - Hepatic function abnormal [Unknown]
  - Rash [Unknown]
  - Toxicity to various agents [Unknown]
  - Mucosal inflammation [Unknown]
  - Thrombocytopenia [Unknown]
  - Neutropenia [Unknown]
  - Renal impairment [Unknown]
  - Diabetes mellitus [Unknown]
  - Stomatitis [Unknown]
  - Off label use [Unknown]
  - Product use in unapproved indication [Unknown]
